FAERS Safety Report 6420824-9 (Version None)
Quarter: 2009Q4

REPORT INFORMATION
  Report Type: 
  Country: None (occurrence: None)
  Receive Date: 20091030
  Receipt Date: 20091023
  Transmission Date: 20100525
  Serious: Yes (Death, Life-Threatening)
  Sender: FDA-Public Use
  Company Number: JP-SANOFI-SYNTHELABO-A01200906441

PATIENT
  Sex: Female
  Weight: 38 kg

DRUGS (14)
  1. BEZATOL SR [Concomitant]
     Indication: HYPERLIPIDAEMIA
     Route: 048
     Dates: start: 20090321, end: 20090513
  2. BEZATOL SR [Concomitant]
     Indication: ANGINA PECTORIS
     Route: 048
     Dates: start: 20090321, end: 20090513
  3. CALCITRIOL [Concomitant]
     Indication: OSTEOPOROSIS
     Route: 048
     Dates: start: 20090321, end: 20090513
  4. LUVOX [Concomitant]
     Indication: ANXIETY DISORDER
     Route: 048
     Dates: start: 20090321, end: 20090513
  5. DIOVAN [Concomitant]
     Indication: GASTRITIS
     Route: 048
     Dates: start: 20090321, end: 20090513
  6. HEAVY MAGNESIUM OXIDE [Concomitant]
     Indication: CONSTIPATION
     Route: 048
     Dates: start: 20090321, end: 20090513
  7. ISALON [Concomitant]
     Indication: HYPERTENSION
     Route: 048
     Dates: start: 20090321, end: 20090513
  8. NICORANDIS [Concomitant]
     Indication: ANGINA PECTORIS
     Route: 048
     Dates: start: 20090321, end: 20090513
  9. GAMOFA [Concomitant]
     Indication: GASTRITIS
     Route: 048
     Dates: start: 20090321, end: 20090513
  10. PLAVIX [Suspect]
     Indication: PERCUTANEOUS CORONARY INTERVENTION
     Route: 048
     Dates: start: 20090510, end: 20090513
  11. PLAVIX [Suspect]
     Indication: STENT PLACEMENT
     Route: 048
     Dates: start: 20090510, end: 20090513
  12. PLAVIX [Suspect]
     Indication: ACUTE MYOCARDIAL INFARCTION
     Route: 048
     Dates: start: 20090510, end: 20090513
  13. ASPIRIN [Concomitant]
     Indication: CEREBRAL INFARCTION
     Route: 048
     Dates: start: 20090321, end: 20090513
  14. UROKINASE [Suspect]
     Indication: ARTERIAL OCCLUSIVE DISEASE
     Dosage: UNK
     Route: 065
     Dates: start: 20090509

REACTIONS (7)
  - CEREBRAL INFARCTION [None]
  - HISTIOCYTOSIS HAEMATOPHAGIC [None]
  - LIVER DISORDER [None]
  - RENAL IMPAIRMENT [None]
  - THROMBOTIC THROMBOCYTOPENIC PURPURA [None]
  - UPPER GASTROINTESTINAL HAEMORRHAGE [None]
  - VENOUS THROMBOSIS LIMB [None]
